FAERS Safety Report 18750426 (Version 1)
Quarter: 2021Q1

REPORT INFORMATION
  Report Type: Spontaneous
  Country: US (occurrence: US)
  Receive Date: 20210118
  Receipt Date: 20210118
  Transmission Date: 20210419
  Serious: No
  Sender: FDA-Public Use
  Company Number: US-AMGEN-USASP2021005891

PATIENT
  Sex: Female

DRUGS (3)
  1. OTEZLA [Suspect]
     Active Substance: APREMILAST
     Indication: PRODUCT USED FOR UNKNOWN INDICATION
     Dosage: 30 MILLIGRAM, QD
     Route: 048
  2. LOTEMAX SM [Concomitant]
     Active Substance: LOTEPREDNOL ETABONATE
  3. OTEZLA [Suspect]
     Active Substance: APREMILAST
     Dosage: 0.5 DOSAGE FORM, QD
     Route: 048
     Dates: start: 2017

REACTIONS (3)
  - Gastric disorder [Not Recovered/Not Resolved]
  - Wrong technique in product usage process [Unknown]
  - Nausea [Not Recovered/Not Resolved]

NARRATIVE: CASE EVENT DATE: 2017
